FAERS Safety Report 19578198 (Version 1)
Quarter: 2021Q3

REPORT INFORMATION
  Report Type: Other
  Country: IT (occurrence: IT)
  Receive Date: 20210719
  Receipt Date: 20210719
  Transmission Date: 20211014
  Serious: Yes (Life-Threatening, Hospitalization, Other)
  Sender: FDA-Public Use
  Company Number: IT-INVATECH-000118

PATIENT
  Age: 33 Year
  Sex: Female

DRUGS (8)
  1. INSULIN GLARGINE [Concomitant]
     Active Substance: INSULIN GLARGINE
     Indication: GESTATIONAL DIABETES
     Dosage: 15U S.C. AT 09.00 P.M
     Route: 058
  2. NIFEDIPINE. [Concomitant]
     Active Substance: NIFEDIPINE
     Indication: PRODUCT USED FOR UNKNOWN INDICATION
     Dosage: 20 MG/DAY
  3. LABETALOL [Suspect]
     Active Substance: LABETALOL\LABETALOL HYDROCHLORIDE
     Indication: HYPERTENSIVE CRISIS
     Route: 042
  4. METHYLDOPA. [Concomitant]
     Active Substance: METHYLDOPA
     Indication: HYPERTENSION
     Dosage: 500 MG THRICE A DAY
  5. METOCLOPRAMIDE. [Suspect]
     Active Substance: METOCLOPRAMIDE
     Indication: DYSPEPSIA
     Dosage: ORAL TABLET?10 MG ONCE A DAY FOR 2 DAYS, AND TWICE A DAY FOR THE 5 DAYS
     Route: 048
  6. INSULIN LISPRO/INSULIN LISPRO PROTAMINE SUSPE [Concomitant]
     Active Substance: INSULIN LISPRO
     Indication: GESTATIONAL DIABETES
     Dosage: 6U AT 7 AM; 10 U AT 12 AM AND 6  PM AT SUBCUTANEOUS
     Route: 058
  7. METOCLOPRAMIDE. [Suspect]
     Active Substance: METOCLOPRAMIDE
     Indication: NAUSEA
     Dosage: ORAL TABLET?10 MG ONCE A DAY FOR 2 DAYS, AND TWICE A DAY FOR THE 5 DAYS
     Route: 048
  8. HYDROCHLOROTHIAZIDE. [Concomitant]
     Active Substance: HYDROCHLOROTHIAZIDE
     Indication: PRODUCT USED FOR UNKNOWN INDICATION
     Dosage: 6.25 MG/DAY

REACTIONS (3)
  - Hypertension [Recovered/Resolved]
  - Exposure during pregnancy [Unknown]
  - Phaeochromocytoma [Unknown]
